FAERS Safety Report 12646919 (Version 2)
Quarter: 2016Q4

REPORT INFORMATION
  Report Type: Spontaneous
  Country: US (occurrence: US)
  Receive Date: 20160812
  Receipt Date: 20161005
  Transmission Date: 20170207
  Serious: No
  Sender: FDA-Public Use
  Company Number: US-ASTRAZENECA-2016SE84658

PATIENT
  Sex: Female
  Weight: 124.3 kg

DRUGS (3)
  1. PROAIR HFA [Concomitant]
     Active Substance: ALBUTEROL SULFATE
  2. OTHER MEDICATIONS [Concomitant]
     Active Substance: UNSPECIFIED INGREDIENT
  3. TUDORZA PRESSAIR [Suspect]
     Active Substance: ACLIDINIUM BROMIDE
     Indication: CHRONIC OBSTRUCTIVE PULMONARY DISEASE
     Dosage: 400 UG, ONE INHALATION TWICE A DAY
     Route: 055
     Dates: start: 20160701

REACTIONS (6)
  - Drug dose omission [Unknown]
  - Arthropathy [Unknown]
  - Product quality issue [Unknown]
  - Dyspnoea [Unknown]
  - Gastric disorder [Unknown]
  - Intentional product misuse [Unknown]
